FAERS Safety Report 8151251-4 (Version None)
Quarter: 2012Q1

REPORT INFORMATION
  Report Type: 
  Country: None (occurrence: None)
  Receive Date: 20120220
  Receipt Date: 20120210
  Transmission Date: 20120608
  Serious: Yes (Hospitalization)
  Sender: FDA-Public Use
  Company Number: US-ABBOTT-12P-163-0904232-00

PATIENT
  Sex: Female
  Weight: 118.04 kg

DRUGS (8)
  1. ATIVAN [Concomitant]
     Indication: ANXIETY
     Route: 048
  2. LIPITOR [Suspect]
     Indication: BLOOD CHOLESTEROL INCREASED
     Route: 048
  3. ATIVAN [Concomitant]
     Indication: DEPRESSION
  4. LEXAPRO [Concomitant]
     Indication: ANXIETY
  5. ZYRTEC [Concomitant]
     Indication: HYPERSENSITIVITY
  6. LEXAPRO [Concomitant]
     Indication: DEPRESSION
  7. TRANDOLAPRIL [Suspect]
     Indication: BLOOD PRESSURE ABNORMAL
     Dosage: 4 MG DAILY
     Dates: end: 20111201
  8. ATIVAN [Concomitant]
     Indication: PANIC ATTACK

REACTIONS (3)
  - BLOOD PRESSURE FLUCTUATION [None]
  - HEART RATE IRREGULAR [None]
  - OXYGEN SATURATION DECREASED [None]
